FAERS Safety Report 12308885 (Version 1)
Quarter: 2016Q2

REPORT INFORMATION
  Report Type: Spontaneous
  Country: US (occurrence: US)
  Receive Date: 20160427
  Receipt Date: 20160427
  Transmission Date: 20160815
  Serious: Yes (Other)
  Sender: FDA-Public Use
  Company Number: US-009507513-1604USA015582

PATIENT
  Sex: Female

DRUGS (1)
  1. NEXPLANON [Suspect]
     Active Substance: ETONOGESTREL
     Indication: CONTRACEPTION
     Dosage: 1 IMPLANT (68 MG) EVERY 3 YEARS
     Route: 059
     Dates: start: 201404

REACTIONS (6)
  - Depression [Unknown]
  - Headache [Unknown]
  - Blindness [Unknown]
  - Anxiety [Unknown]
  - Complication associated with device [Not Recovered/Not Resolved]
  - Alopecia [Unknown]
